FAERS Safety Report 12673508 (Version 4)
Quarter: 2017Q1

REPORT INFORMATION
  Report Type: Spontaneous
  Country: US (occurrence: US)
  Receive Date: 20160822
  Receipt Date: 20170104
  Transmission Date: 20170428
  Serious: No
  Sender: FDA-Public Use
  Company Number: US-CELGENEUS-USA-2016083122

PATIENT
  Age: 78 Year
  Sex: Male
  Weight: 119.86 kg

DRUGS (40)
  1. REVLIMID [Suspect]
     Active Substance: LENALIDOMIDE
     Dosage: 25MG
     Route: 048
     Dates: start: 20160726
  2. DECADRON [Concomitant]
     Active Substance: DEXAMETHASONE
     Indication: PLASMA CELL MYELOMA
     Dosage: 4MG
     Route: 048
     Dates: start: 20160628
  3. ALLOPURINOL. [Concomitant]
     Active Substance: ALLOPURINOL
     Indication: GOUT
     Dosage: 100MG
     Route: 048
     Dates: start: 2003
  4. METFORMIN [Concomitant]
     Active Substance: METFORMIN HYDROCHLORIDE
     Indication: TYPE 2 DIABETES MELLITUS
     Dosage: 500MG
     Route: 048
     Dates: start: 2002, end: 20160317
  5. ACYCLOVIR. [Concomitant]
     Active Substance: ACYCLOVIR
     Indication: ANTIVIRAL PROPHYLAXIS
     Dosage: 800MG
     Route: 048
     Dates: start: 20160628
  6. CYMBALTA [Concomitant]
     Active Substance: DULOXETINE HYDROCHLORIDE
     Indication: NEUROPATHY PERIPHERAL
     Dosage: 60MG
     Route: 048
     Dates: start: 2009
  7. FENOFIBRATE. [Concomitant]
     Active Substance: FENOFIBRATE
     Indication: CORONARY ARTERY DISEASE
     Dosage: 160MG
     Route: 048
     Dates: start: 2004
  8. LISINOPRIL. [Concomitant]
     Active Substance: LISINOPRIL
     Indication: CORONARY ARTERY DISEASE
     Dosage: 40MG
     Route: 048
     Dates: start: 2002, end: 20160804
  9. OMEPRAZOLE. [Concomitant]
     Active Substance: OMEPRAZOLE
     Indication: GASTROOESOPHAGEAL REFLUX DISEASE
     Dosage: 40MG
     Route: 048
     Dates: start: 2004
  10. XARELTO [Concomitant]
     Active Substance: RIVAROXABAN
     Indication: PRODUCT USED FOR UNKNOWN INDICATION
     Dosage: 20MCG
     Route: 048
     Dates: start: 2014
  11. TYLENOL [Concomitant]
     Active Substance: ACETAMINOPHEN
     Indication: BACK PAIN
     Dosage: 500MG
     Route: 048
     Dates: start: 2013
  12. METOLAZONE. [Concomitant]
     Active Substance: METOLAZONE
     Indication: OEDEMA PERIPHERAL
     Dosage: 2.5 MILLIGRAM
     Route: 048
     Dates: start: 20161013, end: 20161105
  13. LANTUS [Concomitant]
     Active Substance: INSULIN GLARGINE
     Indication: TYPE 2 DIABETES MELLITUS
     Dosage: 36IU
     Route: 058
     Dates: start: 1996
  14. PF-04950615 [Concomitant]
     Active Substance: BOCOCIZUMAB
     Indication: CARDIOVASCULAR DISORDER
     Route: 058
     Dates: start: 20160425, end: 20160509
  15. EPLERENONE. [Concomitant]
     Active Substance: EPLERENONE
     Indication: HYPERTENSION
     Dosage: 25MG
     Route: 048
     Dates: start: 2004
  16. CARVEDILOL. [Concomitant]
     Active Substance: CARVEDILOL
     Indication: HYPERTENSION
  17. ARTICAINE [Concomitant]
     Active Substance: ARTICAINE
     Indication: ANAESTHESIA
     Dosage: 4%
     Route: 002
     Dates: start: 20160307, end: 20160307
  18. DULAGLUTIDE. [Concomitant]
     Active Substance: DULAGLUTIDE
     Indication: DIABETES MELLITUS
     Dosage: 0.75MG
     Route: 058
     Dates: start: 20160320
  19. NOVOCAIN [Concomitant]
     Active Substance: PROCAINE HYDROCHLORIDE
     Indication: ANAESTHESIA
     Route: 065
     Dates: start: 20160525, end: 20160525
  20. MAGNESIUM [Concomitant]
     Active Substance: MAGNESIUM
     Indication: MUSCLE SPASMS
     Route: 048
     Dates: start: 201610
  21. CLOPIDOGREL [Concomitant]
     Active Substance: CLOPIDOGREL BISULFATE
     Indication: CORONARY ARTERY DISEASE
     Dosage: 75MG
     Route: 048
     Dates: start: 20030106
  22. FUROSEMIDE. [Concomitant]
     Active Substance: FUROSEMIDE
     Indication: HYPERTENSION
     Dosage: 160MG
     Route: 048
     Dates: start: 2004
  23. METFORMIN [Concomitant]
     Active Substance: METFORMIN HYDROCHLORIDE
     Dosage: 1000MG
     Route: 048
     Dates: start: 20160317
  24. CARVEDILOL. [Concomitant]
     Active Substance: CARVEDILOL
     Indication: CORONARY ARTERY DISEASE
     Dosage: 25MG
     Route: 048
     Dates: start: 20120503
  25. TIKOSYN [Concomitant]
     Active Substance: DOFETILIDE
     Indication: PRODUCT USED FOR UNKNOWN INDICATION
     Dosage: 1000MCG
     Route: 048
     Dates: start: 2012
  26. REVLIMID [Suspect]
     Active Substance: LENALIDOMIDE
     Indication: PLASMA CELL MYELOMA
     Dosage: 25MG
     Route: 048
     Dates: start: 20160628, end: 20160718
  27. HUMALOG [Concomitant]
     Active Substance: INSULIN LISPRO
     Indication: TYPE 2 DIABETES MELLITUS
     Dosage: SSCALE IU
     Route: 058
     Dates: start: 2008
  28. HYDROCODONE [Concomitant]
     Active Substance: HYDROCODONE
     Indication: BACK PAIN
     Dosage: 5-325MG
     Route: 048
     Dates: start: 2011
  29. VITAMIN D3 [Concomitant]
     Active Substance: CHOLECALCIFEROL
     Indication: ROUTINE HEALTH MAINTENANCE
     Dosage: 1000U
     Route: 048
     Dates: start: 2012
  30. MEN^S PROSTATE HEALTH FORMULA [Concomitant]
     Indication: ROUTINE HEALTH MAINTENANCE
     Dosage: 1TAB
     Route: 048
     Dates: start: 2005
  31. AZITHROMYCIN ANHYDROUS. [Concomitant]
     Active Substance: AZITHROMYCIN ANHYDROUS
     Indication: TOOTH ABSCESS
     Dosage: 250MG
     Route: 048
     Dates: start: 20160307, end: 20160311
  32. IMP [Concomitant]
     Indication: MONOCLONAL GAMMOPATHY
     Route: 065
  33. VITAMIN C [Concomitant]
     Active Substance: ASCORBIC ACID
     Indication: ROUTINE HEALTH MAINTENANCE
     Dosage: 1CAP
     Route: 048
     Dates: start: 2015
  34. VITAMIN B12 [Concomitant]
     Active Substance: CYANOCOBALAMIN
     Indication: ROUTINE HEALTH MAINTENANCE
     Dosage: 1000MCG
     Route: 048
     Dates: start: 2015
  35. DAPSONE. [Concomitant]
     Active Substance: DAPSONE
     Indication: ANTIVIRAL PROPHYLAXIS
     Dosage: 100MG
     Route: 048
     Dates: start: 20160628
  36. PAMIDRONATE [Concomitant]
     Active Substance: PAMIDRONATE DISODIUM
     Indication: PRODUCT USED FOR UNKNOWN INDICATION
     Route: 065
     Dates: start: 20160828
  37. LISINOPRIL. [Concomitant]
     Active Substance: LISINOPRIL
     Indication: HYPERTENSION
     Dosage: 20MG
     Route: 048
     Dates: start: 20160805, end: 20161108
  38. POTASSIUM CHLORIDE. [Concomitant]
     Active Substance: POTASSIUM CHLORIDE
     Indication: HYPOKALAEMIA
     Dosage: 40MG
     Route: 048
     Dates: start: 2004
  39. OMEGA 3 KRILL OIL [Concomitant]
     Indication: PRODUCT USED FOR UNKNOWN INDICATION
     Dosage: 1CAP
     Route: 048
     Dates: start: 2014
  40. CENTURY SENIOR MULTIVITAMIN [Concomitant]
     Indication: ROUTINE HEALTH MAINTENANCE
     Dosage: 1TAB
     Route: 048
     Dates: start: 2004

REACTIONS (6)
  - Ageusia [Unknown]
  - Dizziness [Unknown]
  - Dyspnoea [Unknown]
  - Oropharyngeal pain [Unknown]
  - Lethargy [Unknown]
  - Flatulence [Unknown]

NARRATIVE: CASE EVENT DATE: 2016
